FAERS Safety Report 19259086 (Version 1)
Quarter: 2021Q2

REPORT INFORMATION
  Report Type: Spontaneous
  Country: US (occurrence: US)
  Receive Date: 20210514
  Receipt Date: 20210514
  Transmission Date: 20210717
  Serious: No
  Sender: FDA-Public Use
  Company Number: US-JNJFOC-20210523499

PATIENT
  Age: 66 Year
  Sex: Male

DRUGS (2)
  1. XARELTO [Suspect]
     Active Substance: RIVAROXABAN
     Indication: PRODUCT USED FOR UNKNOWN INDICATION
     Route: 048
     Dates: start: 202105
  2. LITHIUM. [Concomitant]
     Active Substance: LITHIUM
     Route: 065

REACTIONS (2)
  - Nausea [Recovered/Resolved]
  - Dizziness [Recovered/Resolved]
